FAERS Safety Report 9192107 (Version 1)
Quarter: 2013Q1

REPORT INFORMATION
  Report Type: Spontaneous
  Country: US (occurrence: None)
  Receive Date: 20130326
  Receipt Date: 20130326
  Transmission Date: 20140127
  Serious: Yes (Life-Threatening, Disabling, Other)
  Sender: FDA-Public Use
  Company Number: None

PATIENT
  Age: 35 Year
  Sex: Male
  Weight: 100.7 kg

DRUGS (4)
  1. RISPERDAL [Suspect]
  2. ATRIPLA [Suspect]
  3. HYDOCODEN [Concomitant]
  4. AMBIEN [Concomitant]

REACTIONS (4)
  - Product quality issue [None]
  - Delusion [None]
  - Gynaecomastia [None]
  - Gait disturbance [None]
